FAERS Safety Report 16031493 (Version 1)
Quarter: 2019Q1

REPORT INFORMATION
  Report Type: Spontaneous
  Country: GB (occurrence: AU)
  Receive Date: 20190304
  Receipt Date: 20190304
  Transmission Date: 20190418
  Serious: Yes (Disabling, Other)
  Sender: FDA-Public Use
  Company Number: GB-MYLANLABS-2019M1017663

PATIENT
  Age: 63 Year
  Sex: Male

DRUGS (2)
  1. AMIODARONE [Suspect]
     Active Substance: AMIODARONE
     Indication: ATRIAL FIBRILLATION
     Dosage: THE AMIODARONE WAS DILUTED IN 1L OF 5% GLUCOSE, TO A CONCENTRATION LESS THAN 2 MG/ML; ADMINISTERE...
     Route: 041
  2. GLUCOSE [Concomitant]
     Active Substance: DEXTROSE
     Indication: PROPHYLAXIS
     Dosage: THE AMIODARONE WAS DILUTED IN 1L OF 5% GLUCOSE
     Route: 041

REACTIONS (10)
  - Administration site extravasation [Recovering/Resolving]
  - Soft tissue necrosis [Recovered/Resolved]
  - Injection site reaction [Recovering/Resolving]
  - Necrosis [Not Recovered/Not Resolved]
  - Anxiety [Not Recovered/Not Resolved]
  - Nerve injury [Not Recovered/Not Resolved]
  - Myositis [Recovering/Resolving]
  - Muscle contracture [Recovering/Resolving]
  - Complex regional pain syndrome [Not Recovered/Not Resolved]
  - Physical disability [Not Recovered/Not Resolved]
